FAERS Safety Report 9680313 (Version 1)
Quarter: 2013Q4

REPORT INFORMATION
  Report Type: Report from Study
  Country: US (occurrence: US)
  Receive Date: 20131111
  Receipt Date: 20131111
  Transmission Date: 20140711
  Serious: Yes (Hospitalization)
  Sender: FDA-Public Use
  Company Number: US-JNJFOC-20131102867

PATIENT
  Age: 78 Year
  Sex: Female

DRUGS (2)
  1. EVICEL [Suspect]
     Indication: INTESTINAL ANASTOMOSIS
     Route: 061
     Dates: start: 20121119
  2. ALL OTHER THERAPEUTIC PRODUCT [Concomitant]
     Indication: INTESTINAL ANASTOMOSIS
     Route: 061
     Dates: start: 20121119

REACTIONS (1)
  - Rash maculo-papular [Recovered/Resolved]
